FAERS Safety Report 6306048-4 (Version None)
Quarter: 2009Q3

REPORT INFORMATION
  Report Type: 
  Country: None (occurrence: None)
  Receive Date: 20090812
  Receipt Date: 20090803
  Transmission Date: 20100115
  Serious: Yes (Other)
  Sender: FDA-Public Use
  Company Number: US-BAYER-200929095NA

PATIENT
  Age: 21 Year
  Sex: Female

DRUGS (3)
  1. YASMIN [Suspect]
     Indication: CONTRACEPTION
     Route: 048
  2. LAMICTAL [Interacting]
     Indication: PETIT MAL EPILEPSY
  3. LAMICTAL [Concomitant]

REACTIONS (1)
  - CONVULSION [None]
